FAERS Safety Report 9513297 (Version 1)
Quarter: 2013Q3

REPORT INFORMATION
  Report Type: Spontaneous
  Country: GB (occurrence: GB)
  Receive Date: 20130910
  Receipt Date: 20130910
  Transmission Date: 20140515
  Serious: Yes (Other)
  Sender: FDA-Public Use
  Company Number: GB-WATSON-2013-15625

PATIENT
  Age: 61 Year
  Sex: Male

DRUGS (4)
  1. MINOXIDIL [Suspect]
     Indication: HYPERTENSION
     Dosage: 100 MG, DAILY
     Route: 048
  2. AMLODIPINE [Concomitant]
     Indication: HYPERTENSION
     Dosage: UNK
     Route: 065
  3. DOXAZOCIN [Concomitant]
     Indication: HYPERTENSION
     Dosage: UNK
     Route: 065
  4. ALLOPURINOL [Concomitant]
     Indication: GOUT
     Dosage: UNK
     Route: 065

REACTIONS (2)
  - Pseudofolliculitis barbae [Recovered/Resolved]
  - Dermatitis papillaris capillitii [Recovered/Resolved]
